FAERS Safety Report 21018122 (Version 1)
Quarter: 2022Q2

REPORT INFORMATION
  Report Type: Report from Study
  Country: EG (occurrence: EG)
  Receive Date: 20220628
  Receipt Date: 20220628
  Transmission Date: 20220721
  Serious: Yes (Other)
  Sender: FDA-Public Use
  Company Number: EG-BAYER-2022A067763

PATIENT
  Sex: Female

DRUGS (4)
  1. EYLEA [Suspect]
     Active Substance: AFLIBERCEPT
     Indication: Diabetic retinal oedema
     Dosage: TOTAL NO. OF EYLEA INJECTIONS IS 8 (5^RT EYE^ + 3 ^LEFT EYE^) (SOLUTION FOR INJECTION)
     Route: 031
     Dates: start: 20201217
  2. EYLEA [Suspect]
     Active Substance: AFLIBERCEPT
     Dosage: UNK, RIGHT EYE, SOLUTION FOR INJECTION
     Dates: start: 202102
  3. EYLEA [Suspect]
     Active Substance: AFLIBERCEPT
     Dosage: UNK,TOTAL NO. OF INJS: 10 (6 RT + 4 LT), SOLUTION FOR INJECTION
  4. EYLEA [Suspect]
     Active Substance: AFLIBERCEPT
     Dosage: UNK, BOTH EYES, SOLUTION FOR INJECTION
     Dates: start: 20220512

REACTIONS (3)
  - Eye haemorrhage [Recovered/Resolved]
  - Retinal oedema [Not Recovered/Not Resolved]
  - Inappropriate schedule of product administration [Not Recovered/Not Resolved]

NARRATIVE: CASE EVENT DATE: 20220501
